FAERS Safety Report 7054717 (Version 4)
Quarter: 2013Q2

REPORT INFORMATION
  Report Type: Spontaneous
  Country: JP (occurrence: JP)
  Receive Date: 20090720
  Receipt Date: 20130404
  Transmission Date: 20140414
  Serious: Yes (Life-Threatening, Hospitalization, Disabling, Other)
  Sender: FDA-Public Use
  Company Number: JP-B.I. PHARMACEUTICALS,INC./RIDGEFIELD-2009-BP-08474NB

PATIENT
  Age: 81 Year
  Sex: Male
  Weight: 40 kg

DRUGS (6)
  1. BI-SIFROL [Suspect]
     Indication: PARKINSON^S DISEASE
     Dosage: 3 MG
     Route: 048
     Dates: start: 20050408, end: 20090502
  2. BI-SIFROL [Suspect]
     Dosage: 1.5 MG
     Route: 048
     Dates: start: 20090514, end: 20090628
  3. MADOPAR [Concomitant]
     Indication: PARKINSON^S DISEASE
     Dosage: 100 MG
     Route: 048
     Dates: start: 20070109
  4. TAKEPRON [Concomitant]
     Indication: ABDOMINAL DISCOMFORT
     Dosage: 15 MG
     Route: 048
     Dates: start: 20070807
  5. DOPS [Concomitant]
     Indication: ORTHOSTATIC HYPOTENSION
     Dosage: 100 MG
     Route: 048
     Dates: start: 20090507, end: 20090619
  6. SYMMETREL [Concomitant]
     Indication: PARKINSON^S DISEASE
     Dosage: 100 MG
     Route: 048
     Dates: start: 20090522, end: 20090731

REACTIONS (5)
  - Pleural effusion [Not Recovered/Not Resolved]
  - Oedema peripheral [Not Recovered/Not Resolved]
  - Scrotal oedema [Not Recovered/Not Resolved]
  - Inappropriate antidiuretic hormone secretion [Not Recovered/Not Resolved]
  - Spinal compression fracture [Recovered/Resolved with Sequelae]
